FAERS Safety Report 5446603-7 (Version None)
Quarter: 2007Q3

REPORT INFORMATION
  Report Type: 
  Country: None (occurrence: None)
  Receive Date: 20070907
  Receipt Date: 20070829
  Transmission Date: 20080115
  Serious: Yes (Hospitalization, Other)
  Sender: FDA-Public Use
  Company Number: US-PFIZER INC-2007057616

PATIENT
  Sex: Male

DRUGS (4)
  1. SUTENT [Suspect]
     Indication: METASTATIC RENAL CELL CARCINOMA
     Route: 048
     Dates: start: 20070618, end: 20070705
  2. CATAPRES [Concomitant]
  3. ATENOLOL [Concomitant]
  4. DOXAZOSIN MESYLATE [Concomitant]

REACTIONS (10)
  - ATRIAL FIBRILLATION [None]
  - CHILLS [None]
  - COUGH [None]
  - DIZZINESS [None]
  - HEADACHE [None]
  - MYALGIA [None]
  - PYREXIA [None]
  - SINUS HEADACHE [None]
  - SINUS OPERATION [None]
  - VENTRICULAR TACHYCARDIA [None]
